FAERS Safety Report 4759447-6 (Version None)
Quarter: 2005Q3

REPORT INFORMATION
  Report Type: 
  Country: None (occurrence: None)
  Receive Date: 20050831
  Receipt Date: 20050822
  Transmission Date: 20060218
  Serious: Yes (Hospitalization, Other)
  Sender: FDA-Public Use
  Company Number: US-2005-008336

PATIENT
  Age: 48 Year
  Sex: Female

DRUGS (3)
  1. MIRENA [Suspect]
     Indication: CONTRACEPTION
     Dosage: 20 UG/DAY. CONT, INTRA-UTERINE
     Route: 015
     Dates: start: 20020701
  2. SYNTHROID [Concomitant]
  3. DEPAKOTE [Concomitant]

REACTIONS (7)
  - ANAEMIA [None]
  - CONDITION AGGRAVATED [None]
  - IUCD COMPLICATION [None]
  - IUD MIGRATION [None]
  - MENORRHAGIA [None]
  - UTERINE ENLARGEMENT [None]
  - UTERINE LEIOMYOMA [None]
